FAERS Safety Report 10069097 (Version 2)
Quarter: 2014Q3

REPORT INFORMATION
  Report Type: Spontaneous
  Country: US (occurrence: US)
  Receive Date: 20140409
  Receipt Date: 20140711
  Transmission Date: 20150326
  Serious: Yes (Other)
  Sender: FDA-Public Use
  Company Number: US-ASTELLAS-2014US003545

PATIENT
  Age: 36 Year
  Sex: Female

DRUGS (2)
  1. PROGRAF [Suspect]
     Active Substance: TACROLIMUS\TACROLIMUS ANHYDROUS
     Indication: LUNG TRANSPLANT
     Dosage: 9 MG, DAILY
     Route: 048
     Dates: start: 19940831
  2. PROGRAF [Suspect]
     Active Substance: TACROLIMUS\TACROLIMUS ANHYDROUS
     Indication: RENAL TRANSPLANT

REACTIONS (4)
  - Drug ineffective [Unknown]
  - Kidney transplant rejection [Unknown]
  - Renal transplant [Unknown]
  - Off label use [Unknown]

NARRATIVE: CASE EVENT DATE: 19960919
